FAERS Safety Report 9903706 (Version 1)
Quarter: 2014Q1

REPORT INFORMATION
  Report Type: Spontaneous
  Country: US (occurrence: US)
  Receive Date: 20140217
  Receipt Date: 20140217
  Transmission Date: 20141002
  Serious: Yes (Death)
  Sender: FDA-Public Use
  Company Number: US-ROCHE-1351371

PATIENT
  Age: 80 Year
  Sex: Female

DRUGS (5)
  1. XELODA [Suspect]
     Indication: COLON CANCER
     Route: 048
     Dates: start: 20140123, end: 20140129
  2. FOLIC ACID [Concomitant]
  3. PREDNISONE [Concomitant]
  4. METHOTREXATE [Concomitant]
  5. LASIX [Concomitant]

REACTIONS (1)
  - Death [Fatal]
